FAERS Safety Report 4815005-6 (Version None)
Quarter: 2005Q4

REPORT INFORMATION
  Report Type: 
  Country: None (occurrence: None)
  Receive Date: 20051026
  Receipt Date: 20051017
  Transmission Date: 20060501
  Serious: Yes (Hospitalization)
  Sender: FDA-Public Use
  Company Number: EWC051046449

PATIENT
  Age: 49 Year
  Sex: Male
  Weight: 63 kg

DRUGS (4)
  1. GEMCITABINE HYDROCHLORIDE-IV (GEMCITABINE) [Suspect]
     Indication: LUNG NEOPLASM MALIGNANT
     Dosage: 1.25 G/M2/2 OTHER
     Route: 050
     Dates: start: 20050705, end: 20050830
  2. CISPLATIN [Suspect]
     Indication: LUNG NEOPLASM MALIGNANT
     Dosage: 75 MG OTHER
     Route: 050
     Dates: start: 20050705, end: 20050823
  3. FOLIC ACID [Concomitant]
  4. VITAMIN B-12 [Concomitant]

REACTIONS (1)
  - HEPATITIS TOXIC [None]
